FAERS Safety Report 8592722-6 (Version None)
Quarter: 2012Q3

REPORT INFORMATION
  Report Type: 
  Country: None (occurrence: None)
  Receive Date: 20120814
  Receipt Date: 20120709
  Transmission Date: 20120928
  Serious: No
  Sender: FDA-Public Use
  Company Number: US-COVIDIEN/TYCO HEALTHCARE/MALLINCKRODT-T201202785

PATIENT
  Age: 64 Year
  Sex: Male

DRUGS (2)
  1. FENTANYL [Suspect]
     Indication: BACK PAIN
     Dosage: 50 UG/HR, QOD
     Route: 062
     Dates: start: 20120703
  2. METHADONE HYDROCHLORIDE [Concomitant]
     Indication: BACK PAIN
     Dosage: 30 MG 3 TIMES PER DAY

REACTIONS (5)
  - HYPERHIDROSIS [None]
  - DRUG INEFFECTIVE [None]
  - CONSTIPATION [None]
  - CRYING [None]
  - HEADACHE [None]
